FAERS Safety Report 8666377 (Version 3)
Quarter: 2013Q2

REPORT INFORMATION
  Report Type: Report from Study
  Country: ES (occurrence: ES)
  Receive Date: 20120716
  Receipt Date: 20130416
  Transmission Date: 20140414
  Serious: Yes (Death)
  Sender: FDA-Public Use
  Company Number: ES-ROCHE-1084312

PATIENT
  Sex: Female
  Weight: 68 kg

DRUGS (9)
  1. TRASTUZUMAB [Suspect]
     Indication: GASTRIC CANCER
     Dosage: LAST DOSE PRIOR TO SAE: 11 JUNE 2012
     Route: 042
     Dates: start: 20110915, end: 20120702
  2. CAPECITABINE [Suspect]
     Indication: GASTRIC CANCER
     Dosage: LAST DOSE PRIOR TO SAE:10/NOV/2011
     Route: 048
     Dates: start: 20110915
  3. OXALIPLATIN [Suspect]
     Indication: GASTRIC CANCER
     Route: 042
     Dates: start: 20110915
  4. FUROSEMIDE [Concomitant]
     Route: 065
     Dates: end: 20120702
  5. SERETIDE [Concomitant]
     Dosage: PRN
     Route: 065
     Dates: end: 20120702
  6. BROMAZEPAM [Concomitant]
     Route: 065
     Dates: end: 20120702
  7. CANDESARTAN [Concomitant]
     Route: 065
     Dates: end: 20120702
  8. HYDROCHLOROTHIAZIDE [Concomitant]
     Route: 065
     Dates: end: 20120702
  9. VENLAFAXINE [Concomitant]
     Route: 065
     Dates: end: 20120702

REACTIONS (2)
  - Septic shock [Fatal]
  - Cardiogenic shock [Fatal]
